FAERS Safety Report 14425869 (Version 1)
Quarter: 2018Q1

REPORT INFORMATION
  Report Type: Spontaneous
  Country: US (occurrence: US)
  Receive Date: 20180123
  Receipt Date: 20180123
  Transmission Date: 20180509
  Serious: Yes (Disabling)
  Sender: FDA-Public Use
  Company Number: None

PATIENT
  Age: 60 Year
  Sex: Female
  Weight: 47.63 kg

DRUGS (2)
  1. COMBIPATCH [Suspect]
     Active Substance: ESTRADIOL\NORETHINDRONE ACETATE
     Indication: MENOPAUSAL SYMPTOMS
     Route: 062
     Dates: start: 20171201, end: 20171208
  2. BAYER LOW DOSE [Concomitant]
     Active Substance: ASPIRIN

REACTIONS (4)
  - Vaginal discharge [None]
  - Milk soy protein intolerance [None]
  - Amnesia [None]
  - Dermatitis allergic [None]

NARRATIVE: CASE EVENT DATE: 20171209
